FAERS Safety Report 24815089 (Version 1)
Quarter: 2025Q1

REPORT INFORMATION
  Report Type: Spontaneous
  Country: CN (occurrence: CN)
  Receive Date: 20250107
  Receipt Date: 20250107
  Transmission Date: 20250409
  Serious: Yes (Other)
  Sender: PFIZER
  Company Number: CN-PFIZER INC-PV202500000241

PATIENT
  Age: 62 Year
  Sex: Male

DRUGS (2)
  1. CYTARABINE [Suspect]
     Active Substance: CYTARABINE
     Indication: Acute leukaemia
     Dosage: 0.2 G, 1X/DAY
     Route: 041
     Dates: start: 20241213, end: 20241216
  2. PIRARUBICIN HYDROCHLORIDE [Suspect]
     Active Substance: PIRARUBICIN HYDROCHLORIDE
     Indication: Acute leukaemia
     Dosage: 20 MG, 1X/DAY
     Route: 041
     Dates: start: 20241213, end: 20241215

REACTIONS (8)
  - Myelosuppression [Recovering/Resolving]
  - Pyrexia [Unknown]
  - Chest discomfort [Unknown]
  - Chest pain [Unknown]
  - Tachypnoea [Unknown]
  - Chills [Unknown]
  - Procalcitonin increased [Unknown]
  - Neoplasm progression [Unknown]

NARRATIVE: CASE EVENT DATE: 20241201
